FAERS Safety Report 4882002-4 (Version None)
Quarter: 2006Q1

REPORT INFORMATION
  Report Type: 
  Country: None (occurrence: None)
  Receive Date: 20060112
  Receipt Date: 20051229
  Transmission Date: 20060701
  Serious: No
  Sender: FDA-Public Use
  Company Number: 2005S1011723

PATIENT
  Age: 62 Year
  Sex: Male
  Weight: 74.8435 kg

DRUGS (12)
  1. FENTANYL TRANSDERMAL SYSTEM [Suspect]
     Indication: BACK PAIN
     Dosage: 100 MCG/HR; QOD; TRANS
     Route: 062
     Dates: start: 20050201
  2. FENTANYL TRANSDERMAL SYSTEM [Suspect]
     Indication: MYALGIA
     Dosage: 100 MCG/HR; QOD; TRANS
     Route: 062
     Dates: start: 20050201
  3. FENTANYL TRANSDERMAL SYSTEM [Suspect]
     Indication: NECK PAIN
     Dosage: 100 MCG/HR; QOD; TRANS
     Route: 062
     Dates: start: 20050201
  4. CELECOXIB [Concomitant]
  5. ACYCLOVIR [Concomitant]
  6. METOPROLOL SUCCINATE [Concomitant]
  7. CARISOPRODOL [Concomitant]
  8. OXYCODONE HCL [Concomitant]
  9. ATORVASTATIN CALCIUM [Concomitant]
  10. LANSOPRAZOLE [Concomitant]
  11. HYDROCHLOROTHIAZIDE [Concomitant]
  12. ASPIRIN [Concomitant]

REACTIONS (6)
  - CONDITION AGGRAVATED [None]
  - DEVICE FAILURE [None]
  - DRUG INEFFECTIVE [None]
  - DRUG WITHDRAWAL SYNDROME [None]
  - INCORRECT DRUG ADMINISTRATION RATE [None]
  - PAIN [None]
